FAERS Safety Report 11093078 (Version 2)
Quarter: 2015Q3

REPORT INFORMATION
  Report Type: Report from Study
  Country: DE (occurrence: DE)
  Receive Date: 20150506
  Receipt Date: 20150818
  Transmission Date: 20151125
  Serious: Yes (Hospitalization, Congenital Anomaly, Other)
  Sender: FDA-Public Use
  Company Number: DE-TEVA-491824GER

PATIENT
  Sex: Male
  Weight: 3.51 kg

DRUGS (7)
  1. COPAXONE [Suspect]
     Active Substance: GLATIRAMER ACETATE
     Indication: MULTIPLE SCLEROSIS
     Route: 064
     Dates: start: 20130402, end: 20140627
  2. METFORMIN [Concomitant]
     Active Substance: METFORMIN HYDROCHLORIDE
     Indication: INFERTILITY FEMALE
     Dosage: 1 AND HALF TABLET A DAY
     Route: 064
     Dates: start: 201403, end: 201408
  3. EUTHYROX [Concomitant]
     Active Substance: LEVOTHYROXINE SODIUM
     Indication: AUTOIMMUNE THYROIDITIS
     Dosage: 137 MICROGRAM DAILY;
     Route: 064
     Dates: start: 201101
  4. DEKRISTOL [Concomitant]
     Active Substance: CHOLECALCIFEROL
     Indication: VITAMIN D DEFICIENCY
     Dosage: 1-2 PER WEEK
     Route: 064
     Dates: start: 201405, end: 201406
  5. FOLIC ACID. [Concomitant]
     Active Substance: FOLIC ACID
     Route: 064
  6. VITAMIN B12 [Concomitant]
     Active Substance: CYANOCOBALAMIN
     Indication: VITAMIN B12 DEFICIENCY
     Dosage: 3-4 X PER WEEK
     Route: 064
     Dates: start: 201405, end: 201406
  7. IRON [Concomitant]
     Active Substance: IRON
     Route: 064

REACTIONS (3)
  - Transposition of the great vessels [Unknown]
  - Foetal exposure during pregnancy [Unknown]
  - Ventricular septal defect [Unknown]

NARRATIVE: CASE EVENT DATE: 2014
